FAERS Safety Report 10003654 (Version 1)
Quarter: 2014Q1

REPORT INFORMATION
  Report Type: Spontaneous
  Country: US (occurrence: US)
  Receive Date: 20140312
  Receipt Date: 20140312
  Transmission Date: 20141002
  Serious: No
  Sender: FDA-Public Use
  Company Number: US-ABBVIE-13P-163-1131880-00

PATIENT
  Age: 57 Year
  Sex: Female
  Weight: 97.61 kg

DRUGS (9)
  1. DEPAKOTE [Suspect]
     Indication: CONVULSION
     Dosage: TWO TABLETS IN THE AM AND THREE IN THE PM
     Route: 048
     Dates: start: 2003, end: 20130731
  2. DEPAKOTE [Suspect]
     Route: 048
     Dates: start: 20130801
  3. KEPPRA [Concomitant]
     Indication: CONVULSION
  4. LANTUS [Concomitant]
     Indication: DIABETES MELLITUS
  5. HUMALOG [Concomitant]
     Indication: DIABETES MELLITUS
  6. ATENOLOL [Concomitant]
     Indication: HYPERTENSION
  7. SIMVASTATIN [Concomitant]
     Indication: BLOOD CHOLESTEROL INCREASED
  8. LISINOPRIL [Concomitant]
     Indication: HYPERTENSION
  9. VITAMIN D NOS [Concomitant]
     Indication: VITAMIN SUPPLEMENTATION

REACTIONS (3)
  - Hair growth abnormal [Recovering/Resolving]
  - Skin disorder [Not Recovered/Not Resolved]
  - Alopecia [Not Recovered/Not Resolved]
